FAERS Safety Report 16340385 (Version 2)
Quarter: 2020Q2

REPORT INFORMATION
  Report Type: Spontaneous
  Country: US (occurrence: US)
  Receive Date: 20190522
  Receipt Date: 20200526
  Transmission Date: 20200713
  Serious: Yes (Death, Other)
  Sender: FDA-Public Use
  Company Number: US-SUN PHARMACEUTICAL INDUSTRIES LTD-2019R1-208405

PATIENT
  Age: 15 Year
  Sex: Female

DRUGS (5)
  1. PREDNISONE. [Suspect]
     Active Substance: PREDNISONE
     Dosage: 5 MILLIGRAM, DAILY
     Route: 042
  2. CYCLOPHOSPHAMIDE. [Suspect]
     Active Substance: CYCLOPHOSPHAMIDE
     Indication: ANTI-GLOMERULAR BASEMENT MEMBRANE ANTIBODY POSITIVE
     Dosage: 10 MG/KG FOLLOWED BY 600 MG/M^2
     Route: 042
  3. RITUXIMAB. [Suspect]
     Active Substance: RITUXIMAB
     Indication: ANTI-GLOMERULAR BASEMENT MEMBRANE ANTIBODY POSITIVE
     Dosage: 750 MILLIGRAM/SQ. METER/ Q2 WEEKS X 2 DOSES
     Route: 065
  4. PREDNISONE. [Suspect]
     Active Substance: PREDNISONE
     Indication: ANTI-GLOMERULAR BASEMENT MEMBRANE ANTIBODY POSITIVE
     Dosage: 60 MILLIGRAM, DAILY
     Route: 042
  5. METHYLPREDNISOLONE. [Suspect]
     Active Substance: METHYLPREDNISOLONE
     Indication: ANTI-GLOMERULAR BASEMENT MEMBRANE ANTIBODY POSITIVE
     Dosage: 10 MILLIGRAM/KILOGRAM/ DOSE
     Route: 042

REACTIONS (9)
  - Cytomegalovirus viraemia [Fatal]
  - Status epilepticus [Fatal]
  - Encephalitis [Fatal]
  - Hypertensive encephalopathy [Fatal]
  - Respiratory disorder [Fatal]
  - Disease progression [Fatal]
  - Otitis media [Unknown]
  - Sepsis [Unknown]
  - End stage renal disease [Fatal]
